FAERS Safety Report 9880373 (Version 1)
Quarter: 2014Q1

REPORT INFORMATION
  Report Type: Spontaneous
  Country: US (occurrence: None)
  Receive Date: 20140206
  Receipt Date: 20140206
  Transmission Date: 20141002
  Serious: Yes (Life-Threatening, Hospitalization, Disabling, Other)
  Sender: FDA-Public Use
  Company Number: None

PATIENT
  Age: 45 Year
  Sex: Male
  Weight: 92.08 kg

DRUGS (13)
  1. TESTOSTERONE [Suspect]
     Indication: BLOOD TESTOSTERONE DECREASED
     Dosage: 5% CREAM?4 CLICKS OF CREAM TO ARM?ONCE A DAY?SKIM AND INJECTION?2009 CREAM?2011 INJECTION
     Dates: start: 2009, end: 2011
  2. AMLODIPINE [Concomitant]
  3. ATORVASTATIN [Concomitant]
  4. FLOMAX [Concomitant]
  5. ATENOLOL [Concomitant]
  6. ZANTAC [Concomitant]
  7. BAYER ASPIRIN [Concomitant]
  8. ONE A DAY [Concomitant]
  9. LIPITOR [Concomitant]
  10. ATENOLOL [Concomitant]
  11. TAMSULOSIN [Concomitant]
  12. RANITIDINE [Concomitant]
  13. WARFARIN [Concomitant]

REACTIONS (4)
  - Blood glucose increased [None]
  - Blood cholesterol increased [None]
  - Pain in extremity [None]
  - Unevaluable event [None]
